APPROVED DRUG PRODUCT: MARAVIROC
Active Ingredient: MARAVIROC
Strength: 150MG
Dosage Form/Route: TABLET;ORAL
Application: A216143 | Product #001 | TE Code: AB
Applicant: RHODES PHARMACEUTICALS LP
Approved: Nov 4, 2025 | RLD: No | RS: No | Type: RX